FAERS Safety Report 11090031 (Version 1)
Quarter: 2015Q2

REPORT INFORMATION
  Report Type: Spontaneous
  Country: GB (occurrence: GB)
  Receive Date: 20150505
  Receipt Date: 20150505
  Transmission Date: 20150821
  Serious: Yes (Hospitalization, Other)
  Sender: FDA-Public Use
  Company Number: GB-B.I. PHARMACEUTICALS,INC./RIDGEFIELD-2015-BI-22260UK

PATIENT
  Age: 66 Year
  Sex: Male

DRUGS (9)
  1. ASPIRIN. [Concomitant]
     Active Substance: ASPIRIN
     Indication: PRODUCT USED FOR UNKNOWN INDICATION
     Dosage: FORMULATION: COATED
     Route: 065
  2. OMEPRAZOLE. [Concomitant]
     Active Substance: OMEPRAZOLE
     Indication: PRODUCT USED FOR UNKNOWN INDICATION
     Route: 065
  3. ATORVASTATIN [Concomitant]
     Active Substance: ATORVASTATIN
     Indication: PRODUCT USED FOR UNKNOWN INDICATION
     Route: 065
  4. BISOPROLOL [Concomitant]
     Active Substance: BISOPROLOL
     Indication: PRODUCT USED FOR UNKNOWN INDICATION
     Route: 065
  5. METFORMIN [Concomitant]
     Active Substance: METFORMIN HYDROCHLORIDE
     Indication: PRODUCT USED FOR UNKNOWN INDICATION
     Route: 065
  6. RAMIPRIL. [Concomitant]
     Active Substance: RAMIPRIL
     Indication: PRODUCT USED FOR UNKNOWN INDICATION
     Route: 065
  7. FOLIC ACID. [Concomitant]
     Active Substance: FOLIC ACID
     Indication: PRODUCT USED FOR UNKNOWN INDICATION
     Route: 065
  8. TRADJENTA [Suspect]
     Active Substance: LINAGLIPTIN
     Indication: PRODUCT USED FOR UNKNOWN INDICATION
     Dosage: 5 MG
     Route: 048
     Dates: start: 20140324, end: 20141202
  9. CITALOPRAM [Concomitant]
     Active Substance: CITALOPRAM HYDROBROMIDE
     Indication: PRODUCT USED FOR UNKNOWN INDICATION
     Route: 065

REACTIONS (21)
  - Abdominal distension [Recovered/Resolved]
  - Pyrexia [Recovered/Resolved]
  - Sensation of foreign body [Recovered/Resolved]
  - Vomiting [Recovered/Resolved]
  - Duodenitis [Recovered/Resolved]
  - Haemoglobin decreased [Recovered/Resolved]
  - Hiatus hernia [Recovered/Resolved]
  - Nausea [Recovered/Resolved]
  - Decreased appetite [Recovered/Resolved]
  - Oesophageal motility disorder [Recovered/Resolved]
  - Pneumonia [Recovered/Resolved]
  - Abdominal pain upper [Recovered/Resolved]
  - Blood alkaline phosphatase increased [Recovered/Resolved]
  - Diarrhoea [Recovered/Resolved]
  - Pancreatitis [Recovered/Resolved]
  - Stoma obstruction [Recovered/Resolved]
  - Malaise [Recovered/Resolved]
  - Amylase increased [Recovered/Resolved]
  - Somnolence [Recovered/Resolved]
  - Abdominal pain upper [Recovered/Resolved]
  - Pseudocyst [Recovered/Resolved]

NARRATIVE: CASE EVENT DATE: 20140501
